FAERS Safety Report 7656671-X (Version None)
Quarter: 2011Q3

REPORT INFORMATION
  Report Type: 
  Country: None (occurrence: None)
  Receive Date: 20110804
  Receipt Date: 20110726
  Transmission Date: 20111222
  Serious: Yes (Hospitalization)
  Sender: FDA-Public Use
  Company Number: FR-MERCK-1107USA03653

PATIENT
  Age: 66 Year
  Sex: Male

DRUGS (9)
  1. STROMECTOL [Suspect]
     Route: 048
     Dates: start: 20101229, end: 20101229
  2. FOLIC ACID [Concomitant]
     Route: 065
  3. ZOLPIDEM [Concomitant]
     Route: 065
  4. OXACILLIN [Suspect]
     Indication: SUPERINFECTION
     Route: 048
     Dates: start: 20101230, end: 20110103
  5. PREDNISONE [Concomitant]
     Route: 065
  6. EMEND [Concomitant]
     Route: 048
  7. ASCABIOL [Concomitant]
     Route: 065
     Dates: start: 20101229
  8. CARBOPLATIN [Suspect]
     Indication: LUNG NEOPLASM
     Dosage: 1 DF CYCLICAL
     Route: 042
     Dates: start: 20101101
  9. ALIMTA [Suspect]
     Indication: LUNG NEOPLASM
     Dosage: CYCLICAL
     Route: 042
     Dates: start: 20101101

REACTIONS (2)
  - NEUTROPENIA [None]
  - THROMBOCYTOPENIA [None]
